FAERS Safety Report 19098820 (Version 3)
Quarter: 2021Q2

REPORT INFORMATION
  Report Type: Spontaneous
  Country: SE (occurrence: SE)
  Receive Date: 20210406
  Receipt Date: 20210428
  Transmission Date: 20210717
  Serious: Yes (Hospitalization)
  Sender: FDA-Public Use
  Company Number: SE-CELGENEUS-SWE-20210307948

PATIENT
  Age: 77 Year
  Sex: Male
  Weight: 81.5 kg

DRUGS (3)
  1. LENALIDOMIDE [Suspect]
     Active Substance: LENALIDOMIDE
     Indication: PLASMA CELL MYELOMA
     Dosage: 5 MILLIGRAM
     Route: 048
     Dates: start: 20141023, end: 20180522
  2. DEXAMETHASONE ORAL [Suspect]
     Active Substance: DEXAMETHASONE
     Indication: PLASMA CELL MYELOMA
     Dosage: 4 MILLIGRAM
     Route: 048
     Dates: start: 20141023, end: 20210126
  3. DARATUMUMAB [Concomitant]
     Active Substance: DARATUMUMAB
     Indication: PLASMA CELL MYELOMA
     Dosage: 1800 MILLIGRAM
     Route: 058
     Dates: start: 20141023, end: 20210105

REACTIONS (1)
  - Visual field defect [Recovered/Resolved with Sequelae]

NARRATIVE: CASE EVENT DATE: 20210318
